FAERS Safety Report 7203315-7 (Version None)
Quarter: 2010Q4

REPORT INFORMATION
  Report Type: 
  Country: None (occurrence: None)
  Receive Date: 20101230
  Receipt Date: 20101220
  Transmission Date: 20110411
  Serious: No
  Sender: FDA-Public Use
  Company Number: US-BIOGENIDEC-2010BI044405

PATIENT
  Sex: Female

DRUGS (3)
  1. AVONEX [Suspect]
     Indication: MULTIPLE SCLEROSIS
     Route: 030
     Dates: start: 20040508
  2. AVONEX [Suspect]
     Route: 030
     Dates: start: 20071007, end: 20080101
  3. AVONEX [Suspect]
     Route: 030
     Dates: start: 20081206

REACTIONS (2)
  - MUSCULOSKELETAL DISCOMFORT [None]
  - SPEECH DISORDER [None]
